FAERS Safety Report 7457405-4 (Version None)
Quarter: 2011Q2

REPORT INFORMATION
  Report Type: 
  Country: None (occurrence: None)
  Receive Date: 20110504
  Receipt Date: 20110419
  Transmission Date: 20111010
  Serious: Yes (Other)
  Sender: FDA-Public Use
  Company Number: PHHY2010MX48800

PATIENT
  Sex: Female

DRUGS (8)
  1. ZOLEDRONIC ACID [Suspect]
     Indication: OSTEOPOROSIS
     Dosage: 5 MG/100 ML PER YEAR
     Route: 042
     Dates: start: 20090501
  2. SERETIDE [Concomitant]
  3. SENNOSIDES A+B [Concomitant]
  4. OMEPRAZOL [Concomitant]
     Indication: GASTRITIS
     Dosage: 1 DF (1 TABLET DAILY)
     Route: 048
  5. ALENDRONATE SODIUM [Concomitant]
  6. PINAVERIUM BROMIDE [Concomitant]
     Indication: COLITIS
     Dosage: 3 DF,(3 TABLETSA DAILY)
     Route: 048
  7. ISOSORBIDE DINITRATE [Concomitant]
     Dosage: 1 DF(1 TABLET DAILY)
     Route: 048
  8. OMEPRAZOLE [Concomitant]

REACTIONS (7)
  - GASTROINTESTINAL MOTILITY DISORDER [None]
  - CONSTIPATION [None]
  - FALL [None]
  - CONTUSION [None]
  - GASTROINTESTINAL INJURY [None]
  - OESOPHAGEAL INJURY [None]
  - GASTROINTESTINAL TRACT IRRITATION [None]
